FAERS Safety Report 9449686 (Version 1)
Quarter: 2013Q3

REPORT INFORMATION
  Report Type: Spontaneous
  Country: BE (occurrence: BE)
  Receive Date: 20130809
  Receipt Date: 20130809
  Transmission Date: 20140515
  Serious: Yes (Hospitalization, Other)
  Sender: FDA-Public Use
  Company Number: BE-009507513-1305BEL010438

PATIENT
  Age: 52 Year
  Sex: 0

DRUGS (5)
  1. ESMERON [Suspect]
     Indication: INDUCTION OF ANAESTHESIA
     Dosage: UNK
     Dates: start: 20130409, end: 20130409
  2. PENTREXYL [Suspect]
  3. DIPRIVAN [Suspect]
  4. SUFENTA [Suspect]
  5. IBUPROFEN [Concomitant]

REACTIONS (2)
  - Anaphylactic shock [Unknown]
  - Type I hypersensitivity [Unknown]
